FAERS Safety Report 18204376 (Version 1)
Quarter: 2020Q3

REPORT INFORMATION
  Report Type: Spontaneous
  Country: FR (occurrence: FR)
  Receive Date: 20200828
  Receipt Date: 20200828
  Transmission Date: 20201103
  Serious: Yes (Other)
  Sender: FDA-Public Use
  Company Number: FR-AUROBINDO-AUR-APL-2020-044855

PATIENT
  Age: 99 Year
  Sex: Male
  Weight: 82 kg

DRUGS (5)
  1. XATRAL [Suspect]
     Active Substance: ALFUZOSIN
     Indication: BENIGN PROSTATIC HYPERPLASIA
     Dosage: 1 DOSAGE FORM, ONCE A DAY
     Route: 048
     Dates: start: 20200712
  2. AZITHROMYCINE [Concomitant]
     Active Substance: AZITHROMYCIN
     Indication: SALMONELLA TEST POSITIVE
     Dosage: 250 MILLIGRAM, ONCE A DAY
     Route: 048
     Dates: start: 20200717, end: 20200721
  3. TEICOPLANINE [Suspect]
     Active Substance: TEICOPLANIN
     Indication: BACTERAEMIA
     Dosage: 800 MILLIGRAM, EVERY OTHER DAY
     Route: 058
     Dates: start: 20200718, end: 20200801
  4. OXYCODONE [Suspect]
     Active Substance: OXYCODONE
     Indication: PAIN
     Dosage: 10 MILLIGRAM, ONCE A DAY
     Route: 048
     Dates: start: 20200720, end: 20200803
  5. NORSET [Suspect]
     Active Substance: MIRTAZAPINE
     Indication: MAJOR DEPRESSION
     Dosage: 15 MILLIGRAM, ONCE A DAY
     Route: 048
     Dates: start: 20200709

REACTIONS (2)
  - Hepatocellular injury [Not Recovered/Not Resolved]
  - Cholestasis [Not Recovered/Not Resolved]

NARRATIVE: CASE EVENT DATE: 20200722
